FAERS Safety Report 12407326 (Version 1)
Quarter: 2016Q2

REPORT INFORMATION
  Report Type: Spontaneous
  Country: GB (occurrence: GB)
  Receive Date: 20160526
  Receipt Date: 20160526
  Transmission Date: 20160815
  Serious: Yes (Other)
  Sender: FDA-Public Use
  Company Number: GB-JNJFOC-20160519041

PATIENT
  Age: 73 Year
  Sex: Female
  Weight: 47.6 kg

DRUGS (1)
  1. STELARA [Suspect]
     Active Substance: USTEKINUMAB
     Indication: PRODUCT USED FOR UNKNOWN INDICATION
     Route: 058
     Dates: start: 201602

REACTIONS (4)
  - Cough [Unknown]
  - Lymphadenopathy [Unknown]
  - Palpitations [Unknown]
  - General symptom [Unknown]

NARRATIVE: CASE EVENT DATE: 2016
